FAERS Safety Report 20773306 (Version 2)
Quarter: 2022Q4

REPORT INFORMATION
  Report Type: Spontaneous
  Country: GB (occurrence: GB)
  Receive Date: 20220502
  Receipt Date: 20221101
  Transmission Date: 20230113
  Serious: Yes (Hospitalization, Other)
  Sender: FDA-Public Use
  Company Number: GB-MYLANLABS-2022M1031761

PATIENT
  Sex: Female

DRUGS (7)
  1. CLOZARIL [Suspect]
     Active Substance: CLOZAPINE
     Indication: Schizophrenia
     Dosage: UNK
     Route: 048
     Dates: start: 20180417
  2. CLOZARIL [Suspect]
     Active Substance: CLOZAPINE
     Dosage: 600 MILLIGRAM, BID, (150 MG IN MORNING AND 450 MG AT NIGHT)
     Route: 065
  3. METFORMIN [Concomitant]
     Active Substance: METFORMIN HYDROCHLORIDE
     Indication: Type 2 diabetes mellitus
     Dosage: 500 MILLIGRAM, BID
     Route: 065
  4. LEVOTHYROXINE [Concomitant]
     Active Substance: LEVOTHYROXINE
     Indication: Hypothyroidism
     Dosage: 50 MICROGRAM, QD, (OD)
     Route: 065
  5. AMISULPRIDE [Concomitant]
     Active Substance: AMISULPRIDE
     Dosage: 400 MILLIGRAM, BID
     Route: 065
  6. LITHIUM [Concomitant]
     Active Substance: LITHIUM
     Dosage: 1000 MILLIGRAM, HS, (ON)
     Route: 065
  7. ATORVASTATIN [Concomitant]
     Active Substance: ATORVASTATIN
     Dosage: 20 MILLIGRAM, QD
     Route: 065

REACTIONS (6)
  - Mental impairment [Unknown]
  - Intentional self-injury [Unknown]
  - Schizoaffective disorder [Unknown]
  - Weight increased [Unknown]
  - Malaise [Unknown]
  - Intentional product misuse [Unknown]
